FAERS Safety Report 4361772-8 (Version None)
Quarter: 2004Q2

REPORT INFORMATION
  Report Type: 
  Country: None (occurrence: None)
  Receive Date: 20040521
  Receipt Date: 20040310
  Transmission Date: 20050107
  Serious: No
  Sender: FDA-Public Use
  Company Number: US-GLAXOSMITHKLINE-A0502169A

PATIENT
  Age: 63 Year
  Sex: Female

DRUGS (12)
  1. WELLBUTRIN XL [Suspect]
     Dosage: 300MG PER DAY
     Route: 048
     Dates: start: 20040213
  2. K-DUR 10 [Concomitant]
  3. HYDROCHLOROTHIAZIDE [Concomitant]
  4. ENDOCET [Concomitant]
  5. ZOCOR [Concomitant]
  6. XANAX [Concomitant]
  7. ELAVIL [Concomitant]
  8. FLEXERIL [Concomitant]
  9. VALIUM [Concomitant]
  10. ALBENZA [Concomitant]
  11. ULTRAM [Concomitant]
  12. TAGAMET [Concomitant]

REACTIONS (2)
  - HEADACHE [None]
  - NAUSEA [None]
